FAERS Safety Report 20668414 (Version 1)
Quarter: 2022Q2

REPORT INFORMATION
  Report Type: Spontaneous
  Country: US (occurrence: US)
  Receive Date: 20220404
  Receipt Date: 20220404
  Transmission Date: 20220721
  Serious: No
  Sender: FDA-Public Use
  Company Number: US-BIOGEN-2022BI01111414

PATIENT
  Sex: Female

DRUGS (1)
  1. TYSABRI [Suspect]
     Active Substance: NATALIZUMAB
     Indication: Crohn^s disease
     Dosage: INFUSE 1 VIAL INTRAVENOUSLY EVERY 4 WEEKS
     Route: 042

REACTIONS (2)
  - Cognitive disorder [Unknown]
  - Speech disorder [Unknown]
